FAERS Safety Report 9812358 (Version 1)
Quarter: 2014Q1

REPORT INFORMATION
  Report Type: Spontaneous
  Country: US (occurrence: US)
  Receive Date: 20140113
  Receipt Date: 20140113
  Transmission Date: 20141002
  Serious: No
  Sender: FDA-Public Use
  Company Number: US-009507513-1401USA003745

PATIENT
  Age: 65 Year
  Sex: Female

DRUGS (5)
  1. COSOPT [Suspect]
     Indication: GLAUCOMA
     Dosage: 1 GTT, BID
     Route: 047
     Dates: start: 201301, end: 201306
  2. ALPHAGAN [Suspect]
     Dosage: UNK
     Dates: end: 2013
  3. LIPITOR [Concomitant]
  4. PERIACTIN [Concomitant]
  5. NIASPAN [Concomitant]

REACTIONS (6)
  - Dark circles under eyes [Recovered/Resolved]
  - Stomatitis [Recovered/Resolved]
  - Lip dry [Recovered/Resolved]
  - Dry mouth [Recovered/Resolved]
  - Drug hypersensitivity [Recovered/Resolved]
  - Ocular hyperaemia [Recovered/Resolved]
